FAERS Safety Report 8180171-4 (Version None)
Quarter: 2012Q1

REPORT INFORMATION
  Report Type: 
  Country: None (occurrence: None)
  Receive Date: 20120302
  Receipt Date: 20120228
  Transmission Date: 20120608
  Serious: Yes (Hospitalization)
  Sender: FDA-Public Use
  Company Number: DK-AMGEN-DNKSP2012009859

PATIENT
  Age: 78 Year
  Sex: Female
  Weight: 64 kg

DRUGS (11)
  1. PREDNISONE TAB [Suspect]
     Indication: B-CELL LYMPHOMA
     Dosage: 100 MG, UNK
     Route: 048
     Dates: start: 20120123
  2. TENORETIC 100 [Concomitant]
     Indication: HYPERTENSION
     Dosage: UNK ABSENT, UNK
     Route: 048
  3. VENLAFAXINE [Concomitant]
     Dosage: 75 MG, UNK
     Route: 048
     Dates: start: 20120105
  4. RITUXIMAB [Suspect]
     Indication: B-CELL LYMPHOMA
     Dosage: 700 MG, UNK
     Route: 042
     Dates: start: 20120123
  5. VINCRISTINE [Suspect]
     Indication: B-CELL LYMPHOMA
     Dosage: 42 MG, UNK
     Route: 042
     Dates: start: 20120123
  6. SIMVASTATIN [Concomitant]
     Indication: BLOOD CHOLESTEROL INCREASED
     Dosage: 40 MG, UNK
     Route: 048
     Dates: start: 20100917
  7. NEUPOGEN [Suspect]
     Indication: B-CELL LYMPHOMA
     Dosage: 6 MG, UNK
     Route: 058
     Dates: start: 20120128
  8. DOXORUBICIN HCL [Suspect]
     Indication: B-CELL LYMPHOMA
     Dosage: 90 MG, UNK
     Route: 042
     Dates: start: 20120123
  9. MIRTAZAPINE [Concomitant]
     Dosage: 15 MG, UNK
     Route: 048
     Dates: start: 20111219
  10. CYCLOPHOSPHAMIDE [Suspect]
     Indication: B-CELL LYMPHOMA
     Dosage: 1350 MG, UNK
     Route: 042
     Dates: start: 20120123
  11. PANTOPRAZOLE [Concomitant]
     Dosage: 40 MG, UNK
     Route: 048
     Dates: start: 20120105

REACTIONS (2)
  - WEIGHT DECREASED [None]
  - ORAL CANDIDIASIS [None]
